FAERS Safety Report 20880395 (Version 1)
Quarter: 2022Q2

REPORT INFORMATION
  Report Type: Spontaneous
  Country: CN (occurrence: CN)
  Receive Date: 20220526
  Receipt Date: 20220526
  Transmission Date: 20220721
  Serious: Yes (Hospitalization)
  Sender: FDA-Public Use
  Company Number: CN-PFIZER INC-202200743983

PATIENT
  Age: 31 Year
  Sex: Female

DRUGS (2)
  1. MEDROL [Suspect]
     Active Substance: METHYLPREDNISOLONE
     Indication: Crohn^s disease
     Dosage: 40 MG, 1X/DAY
     Route: 048
     Dates: start: 20220507
  2. METRONIDAZOLE\SODIUM CHLORIDE [Concomitant]
     Active Substance: METRONIDAZOLE\SODIUM CHLORIDE
     Indication: Crohn^s disease
     Dosage: 0.5 G, 2X/DAY
     Route: 041
     Dates: start: 20220513, end: 20220518

REACTIONS (2)
  - Gastrointestinal haemorrhage [Recovering/Resolving]
  - Off label use [Unknown]

NARRATIVE: CASE EVENT DATE: 20220507
